FAERS Safety Report 7347163-6 (Version None)
Quarter: 2011Q1

REPORT INFORMATION
  Report Type: 
  Country: None (occurrence: None)
  Receive Date: 20110311
  Receipt Date: 20110304
  Transmission Date: 20110831
  Serious: Yes (Death)
  Sender: FDA-Public Use
  Company Number: US-PFIZER INC-2011008309

PATIENT
  Sex: Male

DRUGS (3)
  1. RAPAMUNE [Suspect]
     Indication: ORGAN TRANSPLANT
     Dosage: 3 MG, 1X/DAY
     Route: 048
  2. PREDNISONE [Concomitant]
     Dosage: 5 MG, 1X/DAY
  3. CELLCEPT [Concomitant]
     Dosage: 1000 MG, 2X/DAY

REACTIONS (1)
  - SUDDEN DEATH [None]
